FAERS Safety Report 6977903-7 (Version None)
Quarter: 2010Q3

REPORT INFORMATION
  Report Type: 
  Country: None (occurrence: None)
  Receive Date: 20100913
  Receipt Date: 20100901
  Transmission Date: 20110219
  Serious: Yes (Hospitalization)
  Sender: FDA-Public Use
  Company Number: US-US-EMD SERONO, INC.-231643J10USA

PATIENT
  Sex: Female
  Weight: 113 kg

DRUGS (2)
  1. REBIF [Suspect]
     Indication: MULTIPLE SCLEROSIS
     Route: 058
     Dates: start: 20090417, end: 20100101
  2. REBIF [Suspect]
     Route: 058
     Dates: start: 20100210

REACTIONS (2)
  - GASTRITIS [None]
  - GASTROENTERITIS [None]
